FAERS Safety Report 13659370 (Version 1)
Quarter: 2017Q2

REPORT INFORMATION
  Report Type: Spontaneous
  Country: US (occurrence: US)
  Receive Date: 20170616
  Receipt Date: 20170616
  Transmission Date: 20170830
  Serious: Yes (Hospitalization)
  Sender: FDA-Public Use
  Company Number: None

PATIENT
  Age: 79 Year
  Sex: Female
  Weight: 48.5 kg

DRUGS (20)
  1. COQ10 [Concomitant]
     Active Substance: UBIDECARENONE
  2. HUMALOG [Concomitant]
     Active Substance: INSULIN LISPRO
  3. RESTORIL [Concomitant]
     Active Substance: TEMAZEPAM
  4. LIPITOR [Concomitant]
     Active Substance: ATORVASTATIN CALCIUM
  5. LEVEMIR [Concomitant]
     Active Substance: INSULIN DETEMIR
  6. ALPRAZOLAM. [Suspect]
     Active Substance: ALPRAZOLAM
  7. VITD [Concomitant]
  8. COZAAR [Concomitant]
     Active Substance: LOSARTAN POTASSIUM
  9. ASA [Concomitant]
     Active Substance: ASPIRIN
  10. VITB12 [Concomitant]
  11. PRILOSEC [Concomitant]
     Active Substance: OMEPRAZOLE MAGNESIUM
  12. OXYCODONE/APAP [Suspect]
     Active Substance: ACETAMINOPHEN\OXYCODONE HYDROCHLORIDE
     Indication: NEUROPATHY PERIPHERAL
     Dosage: 10/325MG Q6HRS PO
     Route: 048
  13. AMLODIPINE [Concomitant]
     Active Substance: AMLODIPINE BESYLATE
  14. LOPRESSOR [Concomitant]
     Active Substance: METOPROLOL TARTRATE
  15. NIACIN. [Concomitant]
     Active Substance: NIACIN
  16. PROAIR HFA [Concomitant]
     Active Substance: ALBUTEROL SULFATE
  17. ALBUTEROL. [Concomitant]
     Active Substance: ALBUTEROL
  18. LYRICA [Suspect]
     Active Substance: PREGABALIN
     Indication: ANXIETY
     Route: 048
  19. DOCUSATE [Concomitant]
     Active Substance: DOCUSATE
  20. ADVAIR HFA [Concomitant]
     Active Substance: FLUTICASONE PROPIONATE\SALMETEROL XINAFOATE

REACTIONS (2)
  - Encephalopathy [None]
  - Sepsis [None]

NARRATIVE: CASE EVENT DATE: 20170323
